FAERS Safety Report 20849662 (Version 1)
Quarter: 2022Q2

REPORT INFORMATION
  Report Type: Report from Study
  Country: IT (occurrence: IT)
  Receive Date: 20220519
  Receipt Date: 20220519
  Transmission Date: 20220720
  Serious: Yes (Other)
  Sender: FDA-Public Use
  Company Number: None

PATIENT
  Age: 12 Year
  Sex: Female
  Weight: 64 kg

DRUGS (1)
  1. CLOZAPINE [Suspect]
     Active Substance: CLOZAPINE
     Indication: Psychotic disorder
     Dosage: UNIT DOSE 100 MG,FREQUENCY TIME 1 DAYS,DURATION 19 DAYS
     Route: 048
     Dates: start: 20220328, end: 20220416

REACTIONS (2)
  - Myocarditis [Unknown]
  - Pericarditis [Unknown]

NARRATIVE: CASE EVENT DATE: 20220414
